FAERS Safety Report 7309393-9 (Version None)
Quarter: 2011Q1

REPORT INFORMATION
  Report Type: 
  Country: None (occurrence: None)
  Receive Date: 20110223
  Receipt Date: 20110211
  Transmission Date: 20110831
  Serious: Yes (Other)
  Sender: FDA-Public Use
  Company Number: US-SANOFI-AVENTIS-2010SA010931

PATIENT
  Age: 76 Year
  Sex: Female
  Weight: 64 kg

DRUGS (18)
  1. BENZONATATE [Concomitant]
  2. COREG [Concomitant]
  3. LASIX [Concomitant]
  4. POTASSIUM [Concomitant]
  5. COZAAR [Concomitant]
     Route: 048
  6. MULTAQ [Suspect]
     Indication: ATRIAL FLUTTER
     Route: 048
     Dates: start: 20091215, end: 20100228
  7. AMIODARONE [Suspect]
     Indication: VENTRICULAR FIBRILLATION
     Dates: start: 20091025, end: 20091215
  8. ASPIRIN [Concomitant]
  9. TEMAZEPAM [Concomitant]
  10. PRAVASTATIN [Concomitant]
     Dosage: 1 AND 1/2 TABS PER DAY
  11. CALCIUM WITH VITAMIN D [Concomitant]
  12. CEFDINIR [Concomitant]
  13. VITAMIN D [Concomitant]
     Dosage: DOSE:50000 UNIT(S)
     Route: 048
  14. SPIRONOLACTONE [Concomitant]
  15. FERROUS SULFATE TAB [Concomitant]
  16. AMIODARONE [Suspect]
     Indication: VENTRICULAR TACHYCARDIA
     Dates: start: 20091025, end: 20091215
  17. LISINOPRIL [Concomitant]
  18. ACETAMINOPHEN [Concomitant]

REACTIONS (2)
  - PULMONARY FUNCTION TEST DECREASED [None]
  - CONDITION AGGRAVATED [None]
